FAERS Safety Report 7280177-3 (Version None)
Quarter: 2011Q1

REPORT INFORMATION
  Report Type: 
  Country: None (occurrence: None)
  Receive Date: 20110208
  Receipt Date: 20110127
  Transmission Date: 20110831
  Serious: Yes (Life-Threatening, Hospitalization)
  Sender: FDA-Public Use
  Company Number: FR-SANOFI-AVENTIS-2011SA005407

PATIENT
  Age: 77 Year
  Sex: Female
  Weight: 52 kg

DRUGS (8)
  1. AVASTIN [Suspect]
     Route: 042
     Dates: start: 20101004, end: 20101004
  2. FOLINIC ACID [Suspect]
     Route: 042
     Dates: start: 20101118, end: 20101118
  3. FLUOROURACIL [Suspect]
     Route: 042
     Dates: start: 20101004, end: 20101004
  4. FLUOROURACIL [Suspect]
     Route: 042
     Dates: start: 20101118, end: 20101118
  5. AVASTIN [Suspect]
     Route: 042
     Dates: start: 20101118, end: 20101118
  6. FOLINIC ACID [Suspect]
     Route: 042
     Dates: start: 20101004, end: 20101004
  7. OXALIPLATIN [Suspect]
     Route: 042
     Dates: start: 20101004, end: 20101004
  8. OXALIPLATIN [Suspect]
     Route: 042
     Dates: start: 20101118, end: 20101118

REACTIONS (1)
  - LARGE INTESTINE PERFORATION [None]
